FAERS Safety Report 7150971-8 (Version None)
Quarter: 2010Q4

REPORT INFORMATION
  Report Type: 
  Country: None (occurrence: None)
  Receive Date: 20101210
  Receipt Date: 20101207
  Transmission Date: 20110411
  Serious: Yes (Other)
  Sender: FDA-Public Use
  Company Number: A0898348A

PATIENT
  Age: 53 Year
  Sex: Male

DRUGS (7)
  1. FIBERCHOICE WEIGHT MANAGEMENT SUGAR FREE STRAWBERRY [Suspect]
     Route: 048
  2. SEREVENT [Concomitant]
     Indication: ASTHMA
     Dosage: 1PUFF TWICE PER DAY
     Route: 055
  3. FORADIL SPRAY [Concomitant]
     Indication: ASTHMA
     Route: 055
  4. BUMETANIDE [Concomitant]
     Indication: DIURETIC THERAPY
     Route: 048
  5. POTASSIUM CHLORIDE [Concomitant]
     Indication: ELECTROLYTE SUBSTITUTION THERAPY
     Route: 048
  6. HUMIRA [Concomitant]
     Indication: PSORIASIS
     Route: 058
  7. PROVENTIL [Concomitant]
     Indication: ASTHMA
     Route: 055

REACTIONS (8)
  - ABDOMINAL DISCOMFORT [None]
  - ABDOMINAL PAIN UPPER [None]
  - CONSTIPATION [None]
  - GASTRIC HAEMORRHAGE [None]
  - HAEMORRHOIDAL HAEMORRHAGE [None]
  - HAEMORRHOIDS [None]
  - IRRITABLE BOWEL SYNDROME [None]
  - RECTAL HAEMORRHAGE [None]
